FAERS Safety Report 18079696 (Version 1)
Quarter: 2020Q3

REPORT INFORMATION
  Report Type: Spontaneous
  Country: DK (occurrence: DK)
  Receive Date: 20200728
  Receipt Date: 20200728
  Transmission Date: 20201103
  Serious: Yes (Other)
  Sender: FDA-Public Use
  Company Number: DK-CURIUM-202000251

PATIENT
  Age: 59 Year
  Sex: Female
  Weight: 100 kg

DRUGS (1)
  1. SODIUM IODIDE I 131 [Suspect]
     Active Substance: SODIUM IODIDE I-131
     Indication: HYPERTHYROIDISM
     Dosage: STRENGTH: UNKNOWN.
     Dates: start: 20160914, end: 20160914

REACTIONS (7)
  - Fatigue [Not Recovered/Not Resolved]
  - Hypothyroidism [Unknown]
  - Asthenia [Not Recovered/Not Resolved]
  - Restlessness [Unknown]
  - Cognitive disorder [Not Recovered/Not Resolved]
  - Depression [Not Recovered/Not Resolved]
  - Arthralgia [Unknown]

NARRATIVE: CASE EVENT DATE: 201703
